FAERS Safety Report 7285829-7 (Version None)
Quarter: 2011Q1

REPORT INFORMATION
  Report Type: 
  Country: None (occurrence: None)
  Receive Date: 20110210
  Receipt Date: 20110203
  Transmission Date: 20110831
  Serious: Yes (Hospitalization, Other)
  Sender: FDA-Public Use
  Company Number: DE-BRISTOL-MYERS SQUIBB COMPANY-15256381

PATIENT
  Age: 28 Year
  Sex: Female
  Weight: 54 kg

DRUGS (6)
  1. TRUVADA [Suspect]
     Indication: HIV INFECTION
     Dosage: 1DF: 300/200MG 1TAB/CAPS
     Route: 048
     Dates: start: 20071016
  2. CEFUROXIME [Concomitant]
     Indication: URINARY TRACT INFECTION
  3. SUSTIVA [Suspect]
     Indication: HIV INFECTION
     Dosage: 200 MG TAB, 3 IN EVENING; FROM 11AUG2003, 600 MG TAB, ONE TAB IN EVENINING,JAN03-FEB04,MAY04-OCT06
     Dates: start: 20030101, end: 20061001
  4. CELESTAN [Concomitant]
     Indication: MATERNAL THERAPY TO ENHANCE FOETAL LUNG MATURITY
  5. REYATAZ [Suspect]
     Indication: HIV INFECTION
     Dosage: 1 DF:300/
     Route: 048
     Dates: start: 20071016
  6. NORVIR [Suspect]
     Indication: HIV INFECTION
     Dosage: ALSO MAY-2004 UNTIL OCT-2006.
     Route: 048
     Dates: start: 20061001

REACTIONS (6)
  - VIROLOGIC FAILURE [None]
  - URINARY TRACT INFECTION [None]
  - CAESAREAN SECTION [None]
  - PREMATURE RUPTURE OF MEMBRANES [None]
  - TWIN PREGNANCY [None]
  - PREMATURE LABOUR [None]
